FAERS Safety Report 26183638 (Version 1)
Quarter: 2025Q4

REPORT INFORMATION
  Report Type: Spontaneous
  Country: CN (occurrence: CN)
  Receive Date: 20251221
  Receipt Date: 20251221
  Transmission Date: 20260118
  Serious: Yes (Other)
  Sender: BEIGENE
  Company Number: CN-BEONEMEDICINES-BGN-2025-022703

PATIENT
  Age: 70 Year
  Sex: Male
  Weight: 61 kg

DRUGS (8)
  1. TISLELIZUMAB [Suspect]
     Active Substance: TISLELIZUMAB
     Indication: Neoplasm malignant
     Dosage: 200 MILLIGRAM
     Dates: start: 20251104, end: 20251124
  2. TISLELIZUMAB [Suspect]
     Active Substance: TISLELIZUMAB
     Dosage: 200 MILLIGRAM
     Route: 041
     Dates: start: 20251104, end: 20251124
  3. TISLELIZUMAB [Suspect]
     Active Substance: TISLELIZUMAB
     Dosage: 200 MILLIGRAM
     Route: 041
     Dates: start: 20251104, end: 20251124
  4. TISLELIZUMAB [Suspect]
     Active Substance: TISLELIZUMAB
     Dosage: 200 MILLIGRAM
     Dates: start: 20251104, end: 20251124
  5. CARBOPLATIN [Suspect]
     Active Substance: CARBOPLATIN
     Indication: Neoplasm malignant
     Dosage: 400 MILLIGRAM
     Route: 041
     Dates: start: 20251103, end: 20251124
  6. CARBOPLATIN [Suspect]
     Active Substance: CARBOPLATIN
     Dosage: 400 MILLIGRAM
     Dates: start: 20251103, end: 20251124
  7. PEMETREXED [Suspect]
     Active Substance: PEMETREXED
     Indication: Neoplasm malignant
     Dosage: 0.8 GRAM
     Route: 041
     Dates: start: 20251103, end: 20251124
  8. PEMETREXED [Suspect]
     Active Substance: PEMETREXED
     Dosage: 0.8 GRAM
     Dates: start: 20251103, end: 20251124

REACTIONS (1)
  - Myelosuppression [Unknown]

NARRATIVE: CASE EVENT DATE: 20251124
